FAERS Safety Report 5659980-9 (Version None)
Quarter: 2008Q1

REPORT INFORMATION
  Report Type: 
  Country: None (occurrence: None)
  Receive Date: 20080311
  Receipt Date: 20080229
  Transmission Date: 20080703
  Serious: Yes (Hospitalization)
  Sender: FDA-Public Use
  Company Number: DE-ROCHE-550654

PATIENT
  Sex: Female

DRUGS (1)
  1. LARIAM [Suspect]
     Indication: PROPHYLAXIS
     Dosage: DOSE REPORTED: 1 COURSE
     Route: 048

REACTIONS (1)
  - AMYOTROPHIC LATERAL SCLEROSIS [None]
